FAERS Safety Report 9929979 (Version 1)
Quarter: 2014Q1

REPORT INFORMATION
  Report Type: Spontaneous
  Country: US (occurrence: US)
  Receive Date: 20140227
  Receipt Date: 20140227
  Transmission Date: 20141002
  Serious: No
  Sender: FDA-Public Use
  Company Number: US-AMGEN-USASP2013070480

PATIENT
  Age: 44 Year
  Sex: Female
  Weight: 126.98 kg

DRUGS (9)
  1. ENBREL [Suspect]
     Indication: PRODUCT USED FOR UNKNOWN INDICATION
     Dosage: 50 MG, QWK
     Route: 058
  2. METHOTREXATE [Concomitant]
     Dosage: 2.5 MG, UNK
  3. CELEBREX [Concomitant]
     Dosage: 200 MG, UNK
  4. CELEXA                             /00582602/ [Concomitant]
     Dosage: 10 MG, UNK
  5. HYDROCHLOROTH [Concomitant]
     Dosage: 25 MG, UNK
  6. METFORMIN [Concomitant]
     Dosage: 1000 MG, UNK
  7. SPIRONOLACTON [Concomitant]
     Dosage: 25 MG, UNK
  8. ZYRTEC [Concomitant]
     Dosage: 10 MG, UNK
  9. FLONASE                            /00908302/ [Concomitant]
     Dosage: 0.05 %, UNK

REACTIONS (1)
  - Drug effect incomplete [Unknown]
